FAERS Safety Report 13176156 (Version 1)
Quarter: 2017Q1

REPORT INFORMATION
  Report Type: Spontaneous
  Country: PE (occurrence: PE)
  Receive Date: 20170201
  Receipt Date: 20170201
  Transmission Date: 20170428
  Serious: Yes (Other)
  Sender: FDA-Public Use
  Company Number: PE-PFIZER INC-2017037950

PATIENT
  Age: 42 Year
  Sex: Female

DRUGS (1)
  1. LYRICA [Suspect]
     Active Substance: PREGABALIN
     Indication: HERPES VIRUS INFECTION
     Dosage: 37.5 MG, 2X/DAY

REACTIONS (5)
  - Dizziness [Recovered/Resolved]
  - Drug prescribing error [Unknown]
  - Eye disorder [Unknown]
  - Drug ineffective [Unknown]
  - Blindness unilateral [Unknown]
